FAERS Safety Report 6545381-8 (Version None)
Quarter: 2010Q1

REPORT INFORMATION
  Report Type: 
  Country: None (occurrence: None)
  Receive Date: 20100119
  Receipt Date: 20100107
  Transmission Date: 20100710
  Serious: Yes (Hospitalization)
  Sender: FDA-Public Use
  Company Number: 2009-02632

PATIENT
  Age: 52 Year
  Sex: Female
  Weight: 50.3 kg

DRUGS (6)
  1. VELCADE [Suspect]
     Indication: MULTIPLE MYELOMA
     Dosage: 1.5 MG/M2,  INTRAVENOUS
     Route: 042
     Dates: start: 20090601
  2. DEXAMETHASONE TAB [Suspect]
     Indication: MULTIPLE MYELOMA
     Dosage: 40 MG
     Dates: start: 20090601
  3. PERCOCET [Concomitant]
  4. CELEXA [Concomitant]
  5. MORPHINE [Concomitant]
  6. OSCAL (CALCIUM CARBONATE) [Concomitant]

REACTIONS (14)
  - ACUTE RESPIRATORY FAILURE [None]
  - ATELECTASIS [None]
  - BLOOD ALBUMIN DECREASED [None]
  - BLOOD SODIUM DECREASED [None]
  - BRAIN NATRIURETIC PEPTIDE INCREASED [None]
  - CHEST PAIN [None]
  - COMPRESSION FRACTURE [None]
  - HAEMOGLOBIN DECREASED [None]
  - HYPOTENSION [None]
  - LEFT ATRIAL DILATATION [None]
  - MITRAL VALVE INCOMPETENCE [None]
  - PLATELET COUNT DECREASED [None]
  - PLEURAL EFFUSION [None]
  - TRICUSPID VALVE INCOMPETENCE [None]
